FAERS Safety Report 8974208 (Version 2)
Quarter: 2013Q1

REPORT INFORMATION
  Report Type: Spontaneous
  Country: CA (occurrence: None)
  Receive Date: 20121214
  Receipt Date: 20130117
  Transmission Date: 20140127
  Serious: Yes (Life-Threatening, Hospitalization)
  Sender: FDA-Public Use
  Company Number: CA-010297

PATIENT
  Age: 80 Year
  Sex: Male

DRUGS (1)
  1. DEGARELIX [Suspect]
     Indication: PROSTATE CANCER
     Dosage: 1X/ MONTH
     Route: 058
     Dates: start: 20101230

REACTIONS (2)
  - Urosepsis [None]
  - Urinary retention [None]
